FAERS Safety Report 7735675-2 (Version None)
Quarter: 2011Q3

REPORT INFORMATION
  Report Type: 
  Country: None (occurrence: None)
  Receive Date: 20110907
  Receipt Date: 20110824
  Transmission Date: 20111222
  Serious: Yes (Hospitalization)
  Sender: FDA-Public Use
  Company Number: JP-MYLANLABS-2011S1017842

PATIENT
  Age: 8 Decade
  Sex: Female
  Weight: 61 kg

DRUGS (1)
  1. LANSOPRAZOLE [Suspect]
     Indication: GASTRIC ULCER HAEMORRHAGE
     Route: 048

REACTIONS (2)
  - GASTROINTESTINAL ULCER [None]
  - COLITIS MICROSCOPIC [None]
